FAERS Safety Report 7064359-1 (Version None)
Quarter: 2010Q4

REPORT INFORMATION
  Report Type: 
  Country: None (occurrence: None)
  Receive Date: 20101027
  Receipt Date: 20101022
  Transmission Date: 20110411
  Serious: Yes (Life-Threatening, Hospitalization, Disabling, Other)
  Sender: FDA-Public Use
  Company Number: JP-WYE-H17774110

PATIENT
  Age: 69 Year
  Sex: Male

DRUGS (8)
  1. ZOSYN [Suspect]
     Indication: PNEUMONIA ASPIRATION
     Route: 041
     Dates: start: 20100811, end: 20100823
  2. BISOLVON [Concomitant]
     Indication: PNEUMONIA ASPIRATION
     Dosage: 4 MG/DAY
     Route: 041
     Dates: start: 20100707
  3. SODIUM CHLORIDE [Concomitant]
     Dosage: 20 ML/DAY
     Route: 041
     Dates: start: 20100818
  4. CARBOCISTEINE [Concomitant]
     Indication: PNEUMONIA ASPIRATION
     Dosage: 3 G/DAY
  5. ERYTHROMYCIN ETHYLSUCCINATE [Concomitant]
     Indication: PNEUMONIA ASPIRATION
     Dosage: 1 G/DAY
  6. MULTAMIN [Concomitant]
     Dosage: 1DAY
     Dates: start: 20100818
  7. HALOPERIDOL [Concomitant]
     Indication: HUNTINGTON'S DISEASE
     Dosage: 2 MG/DAY
  8. LANSOPRAZOLE [Concomitant]
     Dosage: 15 MG/DAY

REACTIONS (3)
  - HYPERCAPNIA [None]
  - HYPERGLYCAEMIA [None]
  - RENAL FAILURE ACUTE [None]
